FAERS Safety Report 4359412-7 (Version None)
Quarter: 2004Q2

REPORT INFORMATION
  Report Type: 
  Country: None (occurrence: None)
  Receive Date: 20040518
  Receipt Date: 20040510
  Transmission Date: 20050107
  Serious: Yes (Hospitalization)
  Sender: FDA-Public Use
  Company Number: 200411048DE

PATIENT
  Age: 46 Year
  Sex: Male

DRUGS (5)
  1. RIFAMPICIN [Suspect]
     Indication: PULMONARY TUBERCULOSIS
     Route: 048
     Dates: start: 19981201, end: 19981201
  2. RIFAMPICIN [Concomitant]
     Indication: PULMONARY TUBERCULOSIS
     Route: 048
     Dates: start: 19981001
  3. ISONIAZID [Concomitant]
     Indication: PULMONARY TUBERCULOSIS
     Route: 048
     Dates: start: 19981001
  4. PYRAZINAMIDE [Concomitant]
     Indication: PULMONARY TUBERCULOSIS
     Route: 048
     Dates: start: 19981001
  5. ETHAMBUTOL HCL [Concomitant]
     Indication: PULMONARY TUBERCULOSIS
     Dates: start: 19981001

REACTIONS (7)
  - ANTINUCLEAR ANTIBODY POSITIVE [None]
  - DYSAESTHESIA [None]
  - HEPATITIS C [None]
  - HYPOAESTHESIA [None]
  - MONOPLEGIA [None]
  - PAIN IN EXTREMITY [None]
  - PARAESTHESIA [None]
